FAERS Safety Report 19698149 (Version 2)
Quarter: 2021Q3

REPORT INFORMATION
  Report Type: Spontaneous
  Country: GB (occurrence: GB)
  Receive Date: 20210813
  Receipt Date: 20210825
  Transmission Date: 20211014
  Serious: Yes (Hospitalization, Other)
  Sender: FDA-Public Use
  Company Number: GB-PFIZER INC-202100992100

PATIENT
  Age: 48 Year
  Sex: Male

DRUGS (10)
  1. SUBOXONE [Concomitant]
     Active Substance: BUPRENORPHINE HYDROCHLORIDE\NALOXONE HYDROCHLORIDE
     Dosage: UNK
     Route: 048
  2. BACLOFEN. [Concomitant]
     Active Substance: BACLOFEN
     Dosage: UNKNOWN
     Route: 048
  3. HYDROMORPHONE [Concomitant]
     Active Substance: HYDROMORPHONE
     Dosage: 2 MG
     Route: 037
  4. KETAMINE HCL [Suspect]
     Active Substance: KETAMINE HYDROCHLORIDE
     Dosage: UNK
  5. DULOXETINE. [Suspect]
     Active Substance: DULOXETINE
     Dosage: UNK
  6. BUPIVACAINE. [Concomitant]
     Active Substance: BUPIVACAINE
     Dosage: 4 MG
     Route: 037
  7. GABAPENTIN. [Suspect]
     Active Substance: GABAPENTIN
     Dosage: UNK
     Route: 048
  8. NALOXONE [Suspect]
     Active Substance: NALOXONE
     Dosage: 24 MG/6 MG
     Route: 060
  9. BUPRENORPHINE. [Suspect]
     Active Substance: BUPRENORPHINE
     Dosage: 24 MG/6 MG
     Route: 060
  10. CLONIDINE. [Concomitant]
     Active Substance: CLONIDINE
     Dosage: 336.26 UG
     Route: 037

REACTIONS (3)
  - Brief psychotic disorder with marked stressors [Unknown]
  - Neuropathy peripheral [Unknown]
  - Axillary pain [Unknown]
